FAERS Safety Report 8915835 (Version 2)
Quarter: 2013Q1

REPORT INFORMATION
  Report Type: Spontaneous
  Country: FR (occurrence: FR)
  Receive Date: 20121119
  Receipt Date: 20130116
  Transmission Date: 20140127
  Serious: Yes (Other)
  Sender: FDA-Public Use
  Company Number: FR-PFIZER INC-2012284678

PATIENT
  Age: 15 Year
  Sex: Female
  Weight: 50 kg

DRUGS (2)
  1. AZITHROMYCIN [Suspect]
     Indication: INFECTION
     Dosage: 2 DF, 1X/DAY
     Dates: start: 20121015, end: 20121017
  2. TARDYFERON [Concomitant]
     Dosage: 80 MG, 1X/DAY
     Route: 048
     Dates: start: 20121015

REACTIONS (3)
  - Autoimmune thrombocytopenia [Unknown]
  - Haematoma [Unknown]
  - Haemoglobin decreased [Unknown]
